FAERS Safety Report 23799541 (Version 1)
Quarter: 2024Q2

REPORT INFORMATION
  Report Type: Spontaneous
  Country: US (occurrence: None)
  Receive Date: 20240428
  Receipt Date: 20240428
  Transmission Date: 20240716
  Serious: Yes (Disabling)
  Sender: FDA-Public Use
  Company Number: None

PATIENT
  Age: 22 Year
  Sex: Male
  Weight: 76.5 kg

DRUGS (4)
  1. MONTELUKAST [Suspect]
     Active Substance: MONTELUKAST SODIUM
     Indication: Asthma
     Dates: start: 20100107, end: 20230906
  2. OLANZAPINE [Concomitant]
     Active Substance: OLANZAPINE
  3. CONCERTA [Concomitant]
     Active Substance: METHYLPHENIDATE HYDROCHLORIDE
  4. VITAMIN B COMPLEX [Concomitant]
     Active Substance: CYANOCOBALAMIN\DEXPANTHENOL\NIACINAMIDE\PYRIDOXINE HYDROCHLORIDE\RIBOFLAVIN 5^-PHOSPHATE SODIUM\THIA

REACTIONS (20)
  - Dysgraphia [None]
  - Myopia [None]
  - Fatigue [None]
  - Influenza like illness [None]
  - Irritability [None]
  - Depression [None]
  - Headache [None]
  - Suicidal ideation [None]
  - Cognitive disorder [None]
  - Insomnia [None]
  - Hallucination, visual [None]
  - Sleep apnoea syndrome [None]
  - Hallucination, auditory [None]
  - Anxiety [None]
  - Somnambulism [None]
  - COVID-19 [None]
  - Muscle twitching [None]
  - Disorientation [None]
  - Dysphemia [None]
  - Disturbance in attention [None]

NARRATIVE: CASE EVENT DATE: 20230906
